FAERS Safety Report 24758221 (Version 1)
Quarter: 2024Q4

REPORT INFORMATION
  Report Type: Spontaneous
  Country: CA (occurrence: CA)
  Receive Date: 20241220
  Receipt Date: 20241220
  Transmission Date: 20250115
  Serious: Yes (Hospitalization, Other)
  Sender: CSL BEHRING
  Company Number: CA-BEH-2024187518

PATIENT
  Age: 33 Year
  Sex: Female
  Weight: 118 kg

DRUGS (16)
  1. HUMAN C1-ESTERASE INHIBITOR [Suspect]
     Active Substance: HUMAN C1-ESTERASE INHIBITOR
     Indication: Prophylaxis
     Dosage: UNK, 1 EVERY 1 DAY
     Route: 065
  2. HUMAN C1-ESTERASE INHIBITOR [Suspect]
     Active Substance: HUMAN C1-ESTERASE INHIBITOR
     Indication: Hereditary angioedema with normal C1 esterase inhibitor
     Dosage: 7000 IU, 2 EVERY 1 WEEK
     Route: 058
  3. BERINERT [Suspect]
     Active Substance: HUMAN C1-ESTERASE INHIBITOR
     Indication: Product used for unknown indication
     Dosage: UNK
     Route: 065
  4. BERINERT [Suspect]
     Active Substance: HUMAN C1-ESTERASE INHIBITOR
     Indication: Product used for unknown indication
     Dosage: UNK
     Route: 065
  5. BUPROPION [Concomitant]
     Active Substance: BUPROPION
     Dosage: 300 MG, QD (1 EVERY 1 DAY)
     Route: 065
  6. CANNABIS SATIVA FLOWERING TOP [Concomitant]
     Active Substance: CANNABIS SATIVA FLOWERING TOP
     Route: 065
  7. CLONAZEPAM [Concomitant]
     Active Substance: CLONAZEPAM
     Dosage: 0.25 MG
     Route: 065
  8. HYDROMORPHONE [Concomitant]
     Active Substance: HYDROMORPHONE
     Dosage: 6 MG, 2 EVERY 1 DAY
     Route: 065
  9. HYDROMORPHONE [Concomitant]
     Active Substance: HYDROMORPHONE
     Dosage: 4 MG, 2 EVERY 1 DAY
     Route: 065
  10. ICATIBANT ACETATE [Concomitant]
     Active Substance: ICATIBANT ACETATE
     Route: 065
  11. KETOROLAC [Concomitant]
     Active Substance: KETOROLAC TROMETHAMINE
     Dosage: 10 MG
     Route: 065
  12. ONDANSETRON HYDROCHLORIDE [Concomitant]
     Active Substance: ONDANSETRON HYDROCHLORIDE
     Dosage: 8 MG
     Route: 065
  13. PANTOPRAZOLE SODIUM [Concomitant]
     Active Substance: PANTOPRAZOLE SODIUM
     Dosage: 40 MG, 2 EVERY 1 DAY
     Route: 065
  14. QUETIAPINE FUMARATE [Concomitant]
     Active Substance: QUETIAPINE FUMARATE
     Dosage: 25 MG, 1 EVERY 1 DAY
     Route: 065
  15. RANITIDINE HYDROCHLORIDE [Concomitant]
     Active Substance: RANITIDINE HYDROCHLORIDE
     Dosage: 150 MG, 2 EVERY 1 DAY
     Route: 065
  16. TRAZODONE [Concomitant]
     Active Substance: TRAZODONE HYDROCHLORIDE
     Dosage: 100 MG, 1 EVERY 1 DAY
     Route: 065

REACTIONS (33)
  - Abdominal distension [Not Recovered/Not Resolved]
  - Abdominal pain upper [Not Recovered/Not Resolved]
  - Anxiety [Not Recovered/Not Resolved]
  - Asthenia [Not Recovered/Not Resolved]
  - Catheter site infection [Not Recovered/Not Resolved]
  - Chest discomfort [Not Recovered/Not Resolved]
  - Contusion [Not Recovered/Not Resolved]
  - Fall [Not Recovered/Not Resolved]
  - Fatigue [Not Recovered/Not Resolved]
  - Head discomfort [Not Recovered/Not Resolved]
  - Hepatic pain [Not Recovered/Not Resolved]
  - Hepatomegaly [Not Recovered/Not Resolved]
  - Hereditary angioedema [Not Recovered/Not Resolved]
  - Injection site bruising [Not Recovered/Not Resolved]
  - Injection site discomfort [Not Recovered/Not Resolved]
  - Injection site pain [Not Recovered/Not Resolved]
  - Ligament sprain [Not Recovered/Not Resolved]
  - Limb discomfort [Not Recovered/Not Resolved]
  - Liver disorder [Not Recovered/Not Resolved]
  - Lower respiratory tract infection [Not Recovered/Not Resolved]
  - Malaise [Not Recovered/Not Resolved]
  - Muscle spasms [Not Recovered/Not Resolved]
  - Nausea [Not Recovered/Not Resolved]
  - Oropharyngeal discomfort [Not Recovered/Not Resolved]
  - Pain in extremity [Not Recovered/Not Resolved]
  - Pancreatic disorder [Not Recovered/Not Resolved]
  - Pancreatitis relapsing [Not Recovered/Not Resolved]
  - Product use issue [Not Recovered/Not Resolved]
  - Pyrexia [Not Recovered/Not Resolved]
  - Sepsis [Not Recovered/Not Resolved]
  - Spleen disorder [Not Recovered/Not Resolved]
  - Swelling [Not Recovered/Not Resolved]
  - Vomiting [Not Recovered/Not Resolved]
